FAERS Safety Report 15412778 (Version 3)
Quarter: 2018Q4

REPORT INFORMATION
  Report Type: Spontaneous
  Country: UA (occurrence: UA)
  Receive Date: 20180921
  Receipt Date: 20181101
  Transmission Date: 20190204
  Serious: Yes (Other)
  Sender: FDA-Public Use
  Company Number: PHHY2018UA099578

PATIENT
  Age: 48 Year
  Sex: Female
  Weight: 73 kg

DRUGS (9)
  1. CYCLOSPORIN [Concomitant]
     Active Substance: CYCLOSPORINE
     Dosage: 50 MG, QD
     Route: 065
  2. ZOLEDRONIC ACID [Concomitant]
     Active Substance: ZOLEDRONIC ACID
     Indication: PRODUCT USED FOR UNKNOWN INDICATION
     Dosage: 4 MG, QMO
     Route: 065
     Dates: start: 201802
  3. KISQALI [Suspect]
     Active Substance: RIBOCICLIB
     Indication: PRODUCT USED FOR UNKNOWN INDICATION
     Dosage: 400 MG, QD
     Route: 065
     Dates: start: 20180814
  4. BIOCALCIUM D3 [Concomitant]
     Indication: PRODUCT USED FOR UNKNOWN INDICATION
     Dosage: UNK
     Route: 065
     Dates: start: 201802
  5. KISQALI [Suspect]
     Active Substance: RIBOCICLIB
     Dosage: 200 MG, QD
     Route: 065
  6. FEMARA [Suspect]
     Active Substance: LETROZOLE
     Indication: PRODUCT USED FOR UNKNOWN INDICATION
     Dosage: 2.5 MG, QD
     Route: 065
     Dates: start: 20180814
  7. DENOSUMAB [Concomitant]
     Active Substance: DENOSUMAB
     Indication: PRODUCT USED FOR UNKNOWN INDICATION
     Dosage: 120 MG, UNK
     Route: 065
     Dates: start: 201804
  8. GOSERELIN [Concomitant]
     Active Substance: GOSERELIN
     Indication: PRODUCT USED FOR UNKNOWN INDICATION
     Dosage: 3.6 MG, QMO
     Route: 065
     Dates: start: 20180814
  9. CYCLOSPORIN [Concomitant]
     Active Substance: CYCLOSPORINE
     Indication: IMMUNOSUPPRESSION
     Dosage: 75 MG, QD
     Route: 065
     Dates: start: 20180814

REACTIONS (23)
  - Eosinophil count decreased [Unknown]
  - Mean cell haemoglobin decreased [Unknown]
  - White blood cell count decreased [Recovering/Resolving]
  - Leukopenia [Unknown]
  - Lymphocyte count abnormal [Unknown]
  - Procalcitonin decreased [Unknown]
  - Back pain [Unknown]
  - Drug level increased [Unknown]
  - Neutropenia [Unknown]
  - Basophil count increased [Unknown]
  - Thrombocytopenia [Unknown]
  - Cytomegalovirus test positive [Unknown]
  - Mean cell volume increased [Unknown]
  - Monocyte count abnormal [Unknown]
  - Platelet count increased [Unknown]
  - Haematocrit decreased [Unknown]
  - Red cell distribution width decreased [Unknown]
  - Oedema peripheral [Unknown]
  - Fatigue [Unknown]
  - Neutrophil count abnormal [Unknown]
  - Face oedema [Unknown]
  - Haemoglobin increased [Unknown]
  - Mean cell haemoglobin concentration increased [Unknown]

NARRATIVE: CASE EVENT DATE: 20180912
